FAERS Safety Report 18626719 (Version 1)
Quarter: 2020Q4

REPORT INFORMATION
  Report Type: Spontaneous
  Country: US (occurrence: US)
  Receive Date: 20201217
  Receipt Date: 20201217
  Transmission Date: 20210114
  Serious: No
  Sender: FDA-Public Use
  Company Number: US-AUROBINDO-AUR-APL-2020-054134

PATIENT
  Age: 95 Year
  Sex: Female
  Weight: 63 kg

DRUGS (1)
  1. PHENTERMINE HYDROCHLORIDE CAPSULES USP 15 MG [Suspect]
     Active Substance: PHENTERMINE HYDROCHLORIDE
     Indication: MEDICAL DIET
     Dosage: 1 DOSAGE FORM, DAILY, 50 YEARS AGO
     Route: 065

REACTIONS (1)
  - Drug ineffective [Unknown]

NARRATIVE: CASE EVENT DATE: 202010
